FAERS Safety Report 8767860 (Version 1)
Quarter: 2012Q4

REPORT INFORMATION
  Report Type: 
  Country: US (occurrence: US)
  Receive Date: 20120905
  Receipt Date: 20120905
  Transmission Date: 20130627
  Serious: Yes (Hospitalization, Other)
  Sender: FDA-Public Use
  Company Number: PHHY2012US073402

PATIENT
  Age: 34 Year
  Sex: Male

DRUGS (14)
  1. FLUCONAZOLE [Suspect]
     Indication: CANDIDIASIS
     Dosage: 100 mg, QD
     Route: 048
  2. FLUCONAZOLE [Interacting]
     Dosage: 200 mg, QD
     Route: 042
  3. FLUCONAZOLE [Interacting]
     Dosage: 400 mg, QD
     Route: 048
  4. FLUCONAZOLE [Interacting]
     Dosage: 800 mg, QD
     Route: 048
  5. RIFABUTIN [Interacting]
     Indication: MYCOBACTERIUM AVIUM COMPLEX INFECTION
     Dosage: 150 mg, QW3
  6. ATAZANAVIR [Concomitant]
     Dosage: 300 mg, QD
     Route: 048
  7. RITONAVIR [Concomitant]
     Dosage: 100 mg, QD
     Route: 048
  8. ETHAMBUTOL [Concomitant]
     Dosage: 400 mg, BID
     Route: 048
  9. MOXIFLOXACIN [Concomitant]
     Dosage: 400 mg, QD
     Route: 048
  10. AZITHROMYCIN [Concomitant]
     Dosage: 500 mg, QD
     Route: 048
  11. VALGANCICLOVIR [Concomitant]
     Dosage: 450 mg, BID
     Route: 048
  12. FILGRASTIM [Concomitant]
     Dosage: 300 ug, QD
     Route: 058
  13. ALPRAZOLAM [Concomitant]
     Dosage: 0.25 mg, UNK
  14. ACETAMINOPHEN W/HYDROCODONE [Concomitant]

REACTIONS (3)
  - Thrombocytopenia [Unknown]
  - Iron deficiency anaemia [Recovered/Resolved]
  - Drug interaction [Unknown]
